FAERS Safety Report 8497594-6 (Version None)
Quarter: 2012Q3

REPORT INFORMATION
  Report Type: 
  Country: None (occurrence: None)
  Receive Date: 20120709
  Receipt Date: 20120601
  Transmission Date: 20120928
  Serious: No
  Sender: FDA-Public Use
  Company Number: US-AMGEN-USASP2012034511

PATIENT
  Age: 44 Year
  Sex: Male

DRUGS (1)
  1. ENBREL [Suspect]
     Indication: PSORIATIC ARTHROPATHY
     Dosage: 50 MG, QWK
     Dates: start: 20110207

REACTIONS (7)
  - ASTHENIA [None]
  - PSORIATIC ARTHROPATHY [None]
  - MUSCLE SPASMS [None]
  - INFLUENZA LIKE ILLNESS [None]
  - NAIL DISCOLOURATION [None]
  - FATIGUE [None]
  - DIARRHOEA [None]
